FAERS Safety Report 9255221 (Version 2)
Quarter: 2014Q1

REPORT INFORMATION
  Report Type: Spontaneous
  Country: US (occurrence: None)
  Receive Date: 20121212
  Receipt Date: 20130314
  Transmission Date: 20141002
  Serious: No
  Sender: FDA-Public Use
  Company Number: 1209USA010597

PATIENT
  Age: 45 Year
  Sex: Female

DRUGS (2)
  1. VICTRELIS [Suspect]
     Dosage: 200MG, UNK, ORAL
     Route: 048
  2. RIBAVIRIN [Suspect]
     Dosage: ORAL
     Route: 048

REACTIONS (1)
  - Stomatitis [None]
